FAERS Safety Report 12265407 (Version 1)
Quarter: 2016Q2

REPORT INFORMATION
  Report Type: Spontaneous
  Country: CH (occurrence: CH)
  Receive Date: 20160413
  Receipt Date: 20160413
  Transmission Date: 20160815
  Serious: Yes (Hospitalization)
  Sender: FDA-Public Use
  Company Number: CH-BAYER-2016-064710

PATIENT
  Age: 74 Year
  Sex: Male

DRUGS (16)
  1. XARELTO [Interacting]
     Active Substance: RIVAROXABAN
     Dosage: 10 MG, QD
     Dates: start: 201512, end: 20160222
  2. PLAVIX [Interacting]
     Active Substance: CLOPIDOGREL BISULFATE
     Indication: CORONARY ARTERY DISEASE
     Dosage: 75 MG, QD
     Dates: start: 20160119
  3. TOREM [Concomitant]
     Active Substance: TORSEMIDE
     Dosage: 10 MG, QD
     Dates: start: 201512
  4. CONCOR [Concomitant]
     Active Substance: BISOPROLOL FUMARATE
     Dosage: 2.5 MG, QD
     Dates: start: 201512
  5. ZYLORIC [Concomitant]
     Active Substance: ALLOPURINOL
     Dosage: 300 MG, QD
  6. MOVICOL [Concomitant]
     Active Substance: POLYETHYLENE GLYCOL 3350\POTASSIUM CHLORIDE\SODIUM BICARBONATE\SODIUM CHLORIDE
     Dosage: 1 DF, BID
  7. ACETYLSALICYLIC ACID({=100 MG) [Suspect]
     Active Substance: ASPIRIN
     Indication: CORONARY ARTERY DISEASE
     Dosage: 100 MG, QD
     Dates: start: 20151212
  8. PANTOZOL [Concomitant]
     Active Substance: PANTOPRAZOLE SODIUM
     Dosage: 40 MG, QD
  9. EUTHYROX [Concomitant]
     Active Substance: LEVOTHYROXINE SODIUM
     Dosage: 0.075 MG, QD
     Dates: start: 201601
  10. TRIATEC [Concomitant]
     Active Substance: RAMIPRIL
     Dosage: 2.5 MG, QD
  11. ALDACTONE A [Concomitant]
     Active Substance: SPIRONOLACTONE
     Dosage: 25 MG, QD
  12. ATORVASTATIN [Concomitant]
     Active Substance: ATORVASTATIN
     Dosage: 10 MG, QD
     Dates: start: 201602
  13. PROGRAF [Concomitant]
     Active Substance: TACROLIMUS\TACROLIMUS ANHYDROUS
     Dosage: 1 MG, BID
     Dates: start: 2001
  14. LEVEMIR [Concomitant]
     Active Substance: INSULIN DETEMIR
     Dosage: 6 IU, QD
  15. ESCITALOPRAM [Interacting]
     Active Substance: ESCITALOPRAM OXALATE
     Indication: ANTIDEPRESSANT THERAPY
     Dosage: 20 MG, QD
     Dates: start: 201602
  16. QUETIAPINE FUMARATE. [Concomitant]
     Active Substance: QUETIAPINE FUMARATE
     Dosage: 50 MG, QD
     Dates: start: 20160221

REACTIONS (3)
  - Haematuria [Recovered/Resolved]
  - Potentiating drug interaction [Recovered/Resolved]
  - Bladder tamponade [Recovered/Resolved]

NARRATIVE: CASE EVENT DATE: 20160221
